FAERS Safety Report 7043951-4 (Version None)
Quarter: 2010Q4

REPORT INFORMATION
  Report Type: 
  Country: None (occurrence: None)
  Receive Date: 20101008
  Receipt Date: 20101008
  Transmission Date: 20110411
  Serious: Yes (Other)
  Sender: FDA-Public Use
  Company Number: None

PATIENT
  Age: 69 Year
  Sex: Female
  Weight: 81.6475 kg

DRUGS (3)
  1. RECLAST [Suspect]
     Indication: COMPRESSION FRACTURE
     Dosage: FLETCHER ALLEN INTRAVENOUS
     Route: 042
     Dates: start: 20081117, end: 20081117
  2. RECLAST [Suspect]
     Indication: OSTEOPOROSIS
     Dosage: FLETCHER ALLEN INTRAVENOUS
     Route: 042
     Dates: start: 20081117, end: 20081117
  3. RECLAST [Suspect]

REACTIONS (12)
  - ALOPECIA [None]
  - ARTHRALGIA [None]
  - CONDITION AGGRAVATED [None]
  - INFLUENZA LIKE ILLNESS [None]
  - MALAISE [None]
  - MUSCLE SPASMS [None]
  - MUSCULAR WEAKNESS [None]
  - NAUSEA [None]
  - NEUROPATHY PERIPHERAL [None]
  - PAIN IN EXTREMITY [None]
  - ROSACEA [None]
  - VERTIGO [None]
